FAERS Safety Report 4438974-5 (Version None)
Quarter: 2004Q3

REPORT INFORMATION
  Report Type: 
  Country: None (occurrence: None)
  Receive Date: 20040830
  Receipt Date: 20040820
  Transmission Date: 20050211
  Serious: No
  Sender: FDA-Public Use
  Company Number: 2004UW17720

PATIENT
  Age: 27 Year
  Sex: Female

DRUGS (1)
  1. ELAVIL [Suspect]
     Indication: MIGRAINE PROPHYLAXIS
     Dosage: 75 MG PO
     Route: 048
     Dates: start: 20040804

REACTIONS (1)
  - EPISTAXIS [None]
